FAERS Safety Report 23815042 (Version 1)
Quarter: 2024Q2

REPORT INFORMATION
  Report Type: Spontaneous
  Country: US (occurrence: None)
  Receive Date: 20240502
  Receipt Date: 20240502
  Transmission Date: 20240715
  Serious: Yes (Hospitalization)
  Sender: FDA-Public Use
  Company Number: None

PATIENT
  Age: 52 Year
  Sex: Female
  Weight: 65.25 kg

DRUGS (2)
  1. GADAVIST [Suspect]
     Active Substance: GADOBUTROL
     Indication: Abdominal pain
     Route: 040
     Dates: start: 20240430, end: 20240430
  2. GADAVIST [Suspect]
     Active Substance: GADOBUTROL
     Indication: Pelvic pain

REACTIONS (5)
  - Urticaria [None]
  - Pruritus [None]
  - Head discomfort [None]
  - Ear disorder [None]
  - Contrast media reaction [None]

NARRATIVE: CASE EVENT DATE: 20240430
